FAERS Safety Report 6842784-9 (Version None)
Quarter: 2010Q3

REPORT INFORMATION
  Report Type: 
  Country: None (occurrence: None)
  Receive Date: 20100714
  Receipt Date: 20071220
  Transmission Date: 20110219
  Serious: No
  Sender: FDA-Public Use
  Company Number: US-PFIZER INC-2007064300

PATIENT
  Sex: Female
  Weight: 61.4 kg

DRUGS (7)
  1. CHANTIX [Suspect]
     Indication: SMOKING CESSATION THERAPY
     Route: 048
     Dates: start: 20070501
  2. AMOXICILLIN [Interacting]
     Indication: BRONCHITIS
     Dates: start: 20070601
  3. LEVOXYL [Concomitant]
  4. ATENOLOL [Concomitant]
  5. AVALIDE [Concomitant]
  6. CELEBREX [Concomitant]
  7. LYRICA [Concomitant]

REACTIONS (3)
  - BRONCHITIS [None]
  - DRUG INTERACTION [None]
  - NAUSEA [None]
